FAERS Safety Report 9780001 (Version 1)
Quarter: 2013Q4

REPORT INFORMATION
  Report Type: Spontaneous
  Country: US (occurrence: US)
  Receive Date: 20131223
  Receipt Date: 20131223
  Transmission Date: 20140711
  Serious: Yes (Death)
  Sender: FDA-Public Use
  Company Number: US-GLAXOSMITHKLINE-A1054294A

PATIENT
  Age: 68 Year
  Sex: Female

DRUGS (4)
  1. ARIXTRA [Suspect]
     Indication: HEART VALVE REPLACEMENT
  2. OXYCONTIN [Concomitant]
  3. HYDROCODONE [Concomitant]
  4. 5-FLUOROURACIL [Concomitant]

REACTIONS (2)
  - Rectal cancer [Fatal]
  - Hospice care [Unknown]
